FAERS Safety Report 24050598 (Version 1)
Quarter: 2024Q3

REPORT INFORMATION
  Report Type: Spontaneous
  Country: ZA (occurrence: None)
  Receive Date: 20240704
  Receipt Date: 20240704
  Transmission Date: 20241017
  Serious: Yes (Other)
  Sender: ASTRAZENECA
  Company Number: 2024A148894

PATIENT
  Age: 69 Year
  Sex: Female

DRUGS (10)
  1. DAPAGLIFLOZIN PROPANEDIOL [Suspect]
     Active Substance: DAPAGLIFLOZIN PROPANEDIOL
     Route: 048
  2. VIMOVO [Concomitant]
     Active Substance: ESOMEPRAZOLE MAGNESIUM\NAPROXEN
  3. VITAMINS [Concomitant]
     Active Substance: VITAMINS
  4. GAVISCON PEPPERMINT [Concomitant]
  5. CIPLA LOPERAMIDE [Concomitant]
  6. ATENOLOL [Concomitant]
     Active Substance: ATENOLOL
  7. ECOTRIN [Concomitant]
     Active Substance: ASPIRIN
  8. GLICLAZIDE [Concomitant]
     Active Substance: GLICLAZIDE
  9. LIPOGEN [Concomitant]
  10. JANUMET [Concomitant]
     Active Substance: METFORMIN HYDROCHLORIDE\SITAGLIPTIN PHOSPHATE

REACTIONS (1)
  - Neoplasm malignant [Unknown]
